FAERS Safety Report 9013725 (Version 1)
Quarter: 2013Q1

REPORT INFORMATION
  Report Type: Spontaneous
  Country: US (occurrence: None)
  Receive Date: 20130108
  Receipt Date: 20130108
  Transmission Date: 20140127
  Serious: Yes (Other)
  Sender: FDA-Public Use
  Company Number: None

PATIENT
  Age: 60 Year
  Sex: Male

DRUGS (1)
  1. ATORVASTATIN [Suspect]
     Indication: BLOOD CHOLESTEROL INCREASED
     Dosage: 40MG BY MOUTH DAILY
     Route: 048
     Dates: start: 201112

REACTIONS (5)
  - Back pain [None]
  - Abdominal pain lower [None]
  - Nausea [None]
  - Sexual dysfunction [None]
  - Colitis [None]
